FAERS Safety Report 16475666 (Version 1)
Quarter: 2019Q2

REPORT INFORMATION
  Report Type: Spontaneous
  Country: DE (occurrence: DE)
  Receive Date: 20190625
  Receipt Date: 20190625
  Transmission Date: 20190711
  Serious: Yes (Hospitalization)
  Sender: FDA-Public Use
  Company Number: DE-TEVA-2019-DE-1068109

PATIENT
  Age: 3 Year
  Sex: Male
  Weight: 12 kg

DRUGS (4)
  1. ORFIRIL SAFT [Concomitant]
     Active Substance: VALPROATE SODIUM
     Indication: EPILEPSY
     Dosage: DAILY DOSE: 450 MG MILLGRAM(S) EVERY DAYS
     Dates: start: 20151128
  2. CEFACLOR. [Suspect]
     Active Substance: CEFACLOR
     Indication: TONSILLITIS STREPTOCOCCAL
     Dosage: DAILY DOSE: 500 MG MILLGRAM(S) EVERY DAYS
     Dates: start: 20190113, end: 20190117
  3. OMEPRAZOL [Concomitant]
     Active Substance: OMEPRAZOLE
     Dosage: DAILY DOSE: 5 MG MILLGRAM(S) EVERY DAYS
     Dates: start: 20180420
  4. VIGABATRIN. [Concomitant]
     Active Substance: VIGABATRIN
     Indication: EPILEPSY
     Dosage: DAILY DOSE: 500 MG MILLGRAM(S) EVERY DAYS
     Dates: start: 20170113

REACTIONS (6)
  - Vomiting [Recovered/Resolved]
  - Tonsillitis streptococcal [Recovered/Resolved]
  - Diarrhoea [Recovered/Resolved]
  - General physical condition decreased [Recovered/Resolved]
  - Dyspnoea [Recovered/Resolved]
  - Cough [Recovered/Resolved]

NARRATIVE: CASE EVENT DATE: 20190116
